FAERS Safety Report 6019601-2 (Version None)
Quarter: 2008Q4

REPORT INFORMATION
  Report Type: 
  Country: None (occurrence: None)
  Receive Date: 20081224
  Receipt Date: 20081222
  Transmission Date: 20090506
  Serious: Yes (Death, Other)
  Sender: FDA-Public Use
  Company Number: PHHY2008IT31042

PATIENT
  Sex: Female

DRUGS (7)
  1. CLOZAPINE [Suspect]
     Dosage: 12.5 MG, UNK
     Route: 048
     Dates: start: 20080101
  2. REQUIP [Suspect]
     Indication: PARKINSON'S DISEASE
     Dosage: 20 MG, UNK
     Route: 048
     Dates: start: 19980101
  3. REQUIP [Suspect]
     Dosage: 8 MG, UNK
     Route: 048
  4. COMTAN [Suspect]
     Indication: PARKINSON'S DISEASE
     Dosage: 800 MG, UNK
     Route: 048
     Dates: start: 20070201
  5. NIFEDIPINE [Concomitant]
     Indication: HYPERTENSION
  6. RIVOTRIL [Concomitant]
  7. MADOPAR [Concomitant]
     Indication: PARKINSON'S DISEASE

REACTIONS (3)
  - MALAISE [None]
  - PRESYNCOPE [None]
  - SUDDEN DEATH [None]
